FAERS Safety Report 5314704-X (Version None)
Quarter: 2007Q2

REPORT INFORMATION
  Report Type: 
  Country: None (occurrence: None)
  Receive Date: 20070427
  Receipt Date: 20070413
  Transmission Date: 20071010
  Serious: Yes (Hospitalization)
  Sender: FDA-Public Use
  Company Number: 2005EU002652

PATIENT
  Age: 49 Year
  Sex: Female

DRUGS (7)
  1. TACROLIMUS [Suspect]
     Indication: LIVER TRANSPLANT
     Dosage: 2 MG, BID, ORAL
     Route: 048
     Dates: start: 20051006
  2. MYCOPHENOLATE MOFETIL [Suspect]
     Indication: LIVER TRANSPLANT
     Dosage: SEE IMAGE
     Route: 042
     Dates: start: 20051001, end: 20051006
  3. DACLIZUMAB(DACLIZUMAB) [Suspect]
     Indication: LIVER TRANSPLANT
     Dosage: 111.8 MG, UID/QD, IV NOS
     Route: 042
     Dates: start: 20051001, end: 20051008
  4. METHYLPREDNISOLONE [Suspect]
     Indication: LIVER TRANSPLANT
     Dosage: 20 MG, BID
     Dates: start: 20051001
  5. AMPICILLIN [Concomitant]
  6. CEFOTAXIME SODIUM [Concomitant]
  7. TOBRAMYCIN [Concomitant]

REACTIONS (3)
  - CONGENITAL CYSTIC KIDNEY DISEASE [None]
  - DIALYSIS [None]
  - RENAL IMPAIRMENT [None]
